FAERS Safety Report 6228568-3 (Version None)
Quarter: 2009Q2

REPORT INFORMATION
  Report Type: 
  Country: None (occurrence: None)
  Receive Date: 20090612
  Receipt Date: 20090604
  Transmission Date: 20091009
  Serious: Yes (Other)
  Sender: FDA-Public Use
  Company Number: FI-AVENTIS-200915605GDDC

PATIENT
  Age: 21 Year
  Sex: Female

DRUGS (1)
  1. ARAVA [Suspect]
     Dosage: DOSE: UNK
     Dates: start: 20030201, end: 20080501

REACTIONS (2)
  - DRUG EXPOSURE DURING PREGNANCY [None]
  - SEPSIS [None]
